FAERS Safety Report 6376958-0 (Version None)
Quarter: 2009Q3

REPORT INFORMATION
  Report Type: 
  Country: None (occurrence: None)
  Receive Date: 20090925
  Receipt Date: 20090925
  Transmission Date: 20100115
  Serious: Yes (Death, Hospitalization, Other)
  Sender: FDA-Public Use
  Company Number: US-ABBOTT-09P-163-0591158-00

PATIENT

DRUGS (8)
  1. ZEMPLAR [Suspect]
     Indication: RENAL FAILURE CHRONIC
     Route: 048
     Dates: start: 20070101, end: 20090529
  2. ZEMPLAR [Suspect]
     Indication: HYPERPARATHYROIDISM SECONDARY
  3. ZEMPLAR [Suspect]
     Indication: RENAL FAILURE
  4. OTHER UNKNOWN MEDICATIONS [Concomitant]
     Indication: DRUG USE FOR UNKNOWN INDICATION
     Dates: end: 20090529
  5. INSULIN [Concomitant]
     Indication: DIABETES MELLITUS
     Dates: end: 20090529
  6. FUROSEMIDE [Concomitant]
     Indication: DRUG USE FOR UNKNOWN INDICATION
     Dates: end: 20090529
  7. ASPIRIN [Concomitant]
     Indication: DRUG USE FOR UNKNOWN INDICATION
     Dates: end: 20090529
  8. COUMADIN [Concomitant]
     Indication: BLOOD DISORDER
     Dates: end: 20090529

REACTIONS (5)
  - CARDIAC FAILURE [None]
  - DEATH [None]
  - LOCALISED INFECTION [None]
  - RENAL FAILURE [None]
  - SCRATCH [None]
